FAERS Safety Report 20330730 (Version 2)
Quarter: 2022Q1

REPORT INFORMATION
  Report Type: Spontaneous
  Country: US (occurrence: US)
  Receive Date: 20220113
  Receipt Date: 20220221
  Transmission Date: 20220424
  Serious: Yes (Other)
  Sender: FDA-Public Use
  Company Number: US-AMGEN-USASP2022000729

PATIENT
  Age: 92 Year
  Sex: Female

DRUGS (1)
  1. PROLIA [Suspect]
     Active Substance: DENOSUMAB
     Indication: Product used for unknown indication
     Dosage: UNK
     Route: 065

REACTIONS (8)
  - Exostosis of jaw [Unknown]
  - Hypoacusis [Unknown]
  - Tooth extraction [Unknown]
  - Pain in jaw [Not Recovered/Not Resolved]
  - Feeding disorder [Unknown]
  - Weight decreased [Unknown]
  - Procedural pain [Not Recovered/Not Resolved]
  - Swelling face [Unknown]

NARRATIVE: CASE EVENT DATE: 20210101
